FAERS Safety Report 11777854 (Version 2)
Quarter: 2015Q4

REPORT INFORMATION
  Report Type: Spontaneous
  Country: US (occurrence: US)
  Receive Date: 20151125
  Receipt Date: 20151210
  Transmission Date: 20160304
  Serious: Yes (Other)
  Sender: FDA-Public Use
  Company Number: US-LPDUSPRD-20150911

PATIENT
  Age: 68 Year
  Sex: Female
  Weight: 63.2 kg

DRUGS (5)
  1. BELATACEPT [Concomitant]
     Active Substance: BELATACEPT
     Dosage: DOSE NOT STATED
     Route: 065
  2. STEROID [Concomitant]
     Active Substance: UNSPECIFIED INGREDIENT
     Dosage: DOSE UNKNOWN; 5 DAYS
     Route: 065
  3. MYCOPHENOLATE MOFETIL. [Concomitant]
     Active Substance: MYCOPHENOLATE MOFETIL
     Dosage: 1500 MG ORALLY TWICE DAILY
     Route: 065
  4. TRANEXAMIC ACID INJECTION(0517-0960-01) [Suspect]
     Active Substance: TRANEXAMIC ACID
     Dosage: DOSE NOT PROVIDED
     Route: 065
  5. ANTIHYMOCYTE GLOBULIN [Suspect]
     Active Substance: THYMOCYTE IMMUNE GLOBULIN NOS
     Dosage: 1.5 MG/KG 4 DOSES
     Route: 065

REACTIONS (3)
  - Thrombocytopenia [Unknown]
  - Haemolytic anaemia [Unknown]
  - Thrombotic microangiopathy [Unknown]
